FAERS Safety Report 24213038 (Version 1)
Quarter: 2024Q3

REPORT INFORMATION
  Report Type: Report from Study
  Country: DE (occurrence: DE)
  Receive Date: 20240815
  Receipt Date: 20240815
  Transmission Date: 20241017
  Serious: Yes (Other)
  Sender: TEVA
  Company Number: DE-TEVA-VS-3231808

PATIENT
  Age: 4 Year
  Sex: Male

DRUGS (4)
  1. TACROLIMUS [Suspect]
     Active Substance: TACROLIMUS
     Indication: Immunosuppressant drug therapy
     Route: 065
  2. EVEROLIMUS [Suspect]
     Active Substance: EVEROLIMUS
     Indication: Immunosuppressant drug therapy
     Route: 065
  3. CYCLOSPORINE [Suspect]
     Active Substance: CYCLOSPORINE
     Indication: Immunosuppressant drug therapy
     Route: 065
  4. BASILIXIMAB [Suspect]
     Active Substance: BASILIXIMAB
     Indication: Immunosuppressant drug therapy
     Dosage: TWO SINGLE DOSES ON DAY 0 AND DAY 4 POST-TRANSPLANT
     Route: 065

REACTIONS (4)
  - Bacterial infection [Unknown]
  - Treatment failure [Unknown]
  - Off label use [Unknown]
  - Aphthous ulcer [Unknown]
